FAERS Safety Report 24658887 (Version 1)
Quarter: 2024Q4

REPORT INFORMATION
  Report Type: Spontaneous
  Country: US (occurrence: None)
  Receive Date: 20241122
  Receipt Date: 20241122
  Transmission Date: 20250115
  Serious: Yes (Other)
  Sender: Public
  Company Number: None

PATIENT
  Age: 3 Year
  Sex: Female
  Weight: 65.77 kg

DRUGS (3)
  1. DEXTROAMPHETAMINE SACCHARATE, AMPHETAMINE ASPARTATE, DEXTROAMPHETAMINE [Suspect]
     Active Substance: AMPHETAMINE ASPARTATE\AMPHETAMINE SULFATE\DEXTROAMPHETAMINE SACCHARATE\DEXTROAMPHETAMINE SULFATE
     Dates: start: 20210214
  2. BUPROPION [Suspect]
     Active Substance: BUPROPION
     Dates: start: 20210214
  3. ALBUTEROL [Suspect]
     Active Substance: ALBUTEROL
     Dates: start: 20210214

REACTIONS (10)
  - Caesarean section [None]
  - Premature baby [None]
  - Foetal heart rate abnormal [None]
  - Placenta praevia [None]
  - Placental infarction [None]
  - Unevaluable event [None]
  - Postpartum haemorrhage [None]
  - Anaemia [None]
  - Polydactyly [None]
  - Polycystic ovarian syndrome [None]

NARRATIVE: CASE EVENT DATE: 20240914
